FAERS Safety Report 14631300 (Version 3)
Quarter: 2018Q2

REPORT INFORMATION
  Report Type: Spontaneous
  Country: CA (occurrence: CA)
  Receive Date: 20180313
  Receipt Date: 20180504
  Transmission Date: 20180711
  Serious: Yes (Hospitalization, Other)
  Sender: FDA-Public Use
  Company Number: CA-APOTEX-2018AP007310

PATIENT
  Age: 74 Year
  Sex: Female

DRUGS (1)
  1. APO-ANASTROZOLE [Suspect]
     Active Substance: ANASTROZOLE
     Indication: NEOPLASM MALIGNANT
     Dosage: 1 DF, Q.H.S.
     Route: 048
     Dates: start: 20180110, end: 20180201

REACTIONS (18)
  - Feeling abnormal [Not Recovered/Not Resolved]
  - Muscle disorder [Not Recovered/Not Resolved]
  - Diarrhoea [Not Recovered/Not Resolved]
  - Immobile [Unknown]
  - Loss of personal independence in daily activities [Not Recovered/Not Resolved]
  - Functional gastrointestinal disorder [Unknown]
  - Amnesia [Not Recovered/Not Resolved]
  - Pain [Not Recovered/Not Resolved]
  - Hypoaesthesia [Not Recovered/Not Resolved]
  - Suicidal ideation [Unknown]
  - Gait disturbance [Not Recovered/Not Resolved]
  - Headache [Not Recovered/Not Resolved]
  - Muscle disorder [Not Recovered/Not Resolved]
  - Cough [Not Recovered/Not Resolved]
  - Muscle atrophy [Not Recovered/Not Resolved]
  - Cognitive disorder [Unknown]
  - Visual impairment [Not Recovered/Not Resolved]
  - Bone pain [Not Recovered/Not Resolved]

NARRATIVE: CASE EVENT DATE: 201801
